FAERS Safety Report 7406228-0 (Version None)
Quarter: 2011Q2

REPORT INFORMATION
  Report Type: 
  Country: None (occurrence: None)
  Receive Date: 20110406
  Receipt Date: 20110406
  Transmission Date: 20111010
  Serious: Yes (Hospitalization)
  Sender: FDA-Public Use
  Company Number: None

PATIENT
  Age: 58 Year
  Sex: Female

DRUGS (2)
  1. CARBOPLATIN [Suspect]
     Dosage: 650 MG OTHER IV
     Route: 042
     Dates: start: 20100915, end: 20101006
  2. PACLITAXEL [Suspect]
     Indication: LUNG NEOPLASM MALIGNANT
     Dosage: 325 MG OTHER IV
     Route: 042
     Dates: start: 20100915, end: 20101006

REACTIONS (10)
  - NAUSEA [None]
  - RETCHING [None]
  - ERYTHEMA [None]
  - FEELING HOT [None]
  - HYPERHIDROSIS [None]
  - INFUSION RELATED REACTION [None]
  - TACHYCARDIA [None]
  - DYSPNOEA [None]
  - PALPITATIONS [None]
  - BLOOD PRESSURE SYSTOLIC INCREASED [None]
